FAERS Safety Report 11738395 (Version 3)
Quarter: 2017Q2

REPORT INFORMATION
  Report Type: Report from Study
  Country: JP (occurrence: JP)
  Receive Date: 20151113
  Receipt Date: 20170525
  Transmission Date: 20170829
  Serious: Yes (Death, Hospitalization)
  Sender: FDA-Public Use
  Company Number: JP-EISAI MEDICAL RESEARCH-EC-2015-012026

PATIENT
  Sex: Female
  Weight: 44 kg

DRUGS (11)
  1. OMEPRAZOLE. [Concomitant]
     Active Substance: OMEPRAZOLE
  2. LENVIMA [Suspect]
     Active Substance: LENVATINIB
     Indication: ANAPLASTIC THYROID CANCER
     Route: 048
     Dates: start: 20150608, end: 20150619
  3. LENVIMA [Suspect]
     Active Substance: LENVATINIB
     Route: 048
     Dates: start: 20150627, end: 20150805
  4. LENVIMA [Suspect]
     Active Substance: LENVATINIB
     Route: 048
     Dates: start: 20150813, end: 20151110
  5. DEPAKENE [Concomitant]
     Active Substance: VALPROIC ACID
  6. MIGSIS [Concomitant]
     Active Substance: LOMERIZINE HYDROCHLORIDE
  7. MOSAPRIDE [Concomitant]
     Active Substance: MOSAPRIDE
  8. EURONDIN [Concomitant]
  9. BIO-THREE [Concomitant]
     Active Substance: HERBALS
  10. SULPIRIDE [Concomitant]
     Active Substance: SULPIRIDE
  11. LEVOTHYROXINE. [Concomitant]
     Active Substance: LEVOTHYROXINE

REACTIONS (2)
  - Malignant neoplasm progression [Fatal]
  - Pleural effusion [Recovering/Resolving]

NARRATIVE: CASE EVENT DATE: 20150620
